FAERS Safety Report 21875248 (Version 2)
Quarter: 2023Q1

REPORT INFORMATION
  Report Type: Report from Study
  Country: BR (occurrence: BR)
  Receive Date: 20230117
  Receipt Date: 20230119
  Transmission Date: 20230417
  Serious: Yes (Hospitalization)
  Sender: FDA-Public Use
  Company Number: BR-ABBVIE-4273123

PATIENT
  Sex: Male
  Weight: 73 kg

DRUGS (1)
  1. RINVOQ [Suspect]
     Active Substance: UPADACITINIB
     Indication: Dermatitis atopic
     Dosage: 1 TABLET
     Route: 048
     Dates: end: 20230108

REACTIONS (8)
  - Gait inability [Recovering/Resolving]
  - Wound [Recovering/Resolving]
  - Wound secretion [Recovering/Resolving]
  - Joint range of motion decreased [Recovering/Resolving]
  - Inflammation of wound [Recovering/Resolving]
  - Dermatitis atopic [Recovering/Resolving]
  - Unevaluable event [Recovering/Resolving]
  - Neck injury [Recovering/Resolving]

NARRATIVE: CASE EVENT DATE: 20230107
